FAERS Safety Report 22809597 (Version 2)
Quarter: 2024Q3

REPORT INFORMATION
  Report Type: Spontaneous
  Country: PR (occurrence: PR)
  Receive Date: 20230810
  Receipt Date: 20240925
  Transmission Date: 20241016
  Serious: No
  Sender: SANDOZ
  Company Number: PR-GLAXOSMITHKLINE-PRCH2023032031

PATIENT

DRUGS (1)
  1. VOLTAREN [Suspect]
     Active Substance: DICLOFENAC SODIUM
     Indication: Costochondritis
     Dosage: UNK
     Route: 065

REACTIONS (2)
  - Drug effective for unapproved indication [Unknown]
  - Product use in unapproved indication [Recovered/Resolved]
